FAERS Safety Report 9647622 (Version 1)
Quarter: 2013Q4

REPORT INFORMATION
  Report Type: Spontaneous
  Country: US (occurrence: None)
  Receive Date: 20131024
  Receipt Date: 20131024
  Transmission Date: 20140711
  Serious: Yes (Other)
  Sender: FDA-Public Use
  Company Number: None

PATIENT
  Age: 35 Year
  Sex: 0
  Weight: 52.16 kg

DRUGS (1)
  1. RECLAST [Suspect]
     Indication: OSTEOPOROSIS
     Dates: start: 20131001, end: 20131001

REACTIONS (7)
  - Back pain [None]
  - Dizziness [None]
  - Headache [None]
  - Pyrexia [None]
  - Blood sodium decreased [None]
  - Arthralgia [None]
  - Gait disturbance [None]
